FAERS Safety Report 7211547-7 (Version None)
Quarter: 2011Q1

REPORT INFORMATION
  Report Type: 
  Country: None (occurrence: None)
  Receive Date: 20110105
  Receipt Date: 20101229
  Transmission Date: 20110831
  Serious: Yes (Hospitalization, Other)
  Sender: FDA-Public Use
  Company Number: RU-ASTRAZENECA-2010SE43207

PATIENT
  Age: 20523 Day
  Sex: Male
  Weight: 96 kg

DRUGS (44)
  1. ATORVASTATIN [Suspect]
     Dosage: 2.5 MG OR 5 MG DAILY
     Route: 048
     Dates: start: 20100906, end: 20100907
  2. LISINOPRIL [Concomitant]
  3. CLOPIDOGREL [Concomitant]
     Dates: start: 20100323, end: 20100331
  4. ENALAPRIL [Concomitant]
  5. RIVAROXABAN [Suspect]
     Route: 048
     Dates: start: 20100901, end: 20100905
  6. FUROSEMIDE [Concomitant]
  7. ISOSORBIDE MONONITRATE [Concomitant]
  8. POTASSIUM [Concomitant]
  9. HYLAK [Concomitant]
     Dates: start: 20101113, end: 20101113
  10. ACETYLSALICYLIC ACID [Concomitant]
     Indication: ACUTE CORONARY SYNDROME
     Dates: end: 20100308
  11. CLOPIDOGREL [Concomitant]
     Indication: ACUTE CORONARY SYNDROME
     Dates: end: 20100318
  12. PERINDOPRIL [Concomitant]
  13. POTASSIUM CHLORIDE [Concomitant]
  14. SPIRONOLACTONE [Concomitant]
     Dates: end: 20101221
  15. DILTIAZEM [Concomitant]
  16. METOPROLOL [Concomitant]
  17. RIVAROXABAN [Suspect]
     Route: 048
     Dates: start: 20100515, end: 20100905
  18. AMIODARONE [Suspect]
  19. SIMVASTATIN [Concomitant]
  20. MAGNESIUM ASPARTATE [Concomitant]
  21. RIVAROXABAN [Suspect]
     Indication: ACUTE CORONARY SYNDROME
     Route: 048
     Dates: start: 20100315, end: 20100315
  22. SODIUM CHLORIDE [Concomitant]
  23. ISOSORBIDE DINITRATE [Concomitant]
  24. MORPHINE HYDROCHLORIDE [Concomitant]
  25. TRIMEPERIDINE [Concomitant]
  26. ATORVASTATIN [Suspect]
     Dosage: 2.5 MG OR 5 MG DAILY
     Route: 048
     Dates: end: 20100831
  27. ACETYLSALICYLIC ACID [Concomitant]
     Dates: start: 20100430
  28. GLUCOSE [Concomitant]
  29. MAGNESIUM SULFATE [Concomitant]
  30. HEPARIN [Concomitant]
  31. RIVAROXABAN [Suspect]
     Route: 048
     Dates: start: 20100906, end: 20100907
  32. ACETYLSALICYLIC ACID [Concomitant]
     Dates: end: 20100429
  33. BISOPROLOL [Concomitant]
  34. PHENAZEPAM [Concomitant]
  35. BETAXOLOL [Concomitant]
  36. CAPTOPRIL [Concomitant]
  37. METAMIZOLE SODIUM [Concomitant]
  38. OMEPRAZOLE [Suspect]
     Route: 048
  39. RIVAROXABAN [Suspect]
     Dosage: 2.5 MG OR 5 MG
     Route: 048
     Dates: start: 20100316, end: 20100512
  40. RIVAROXABAN [Suspect]
     Route: 048
     Dates: end: 20100831
  41. ATORVASTATIN [Suspect]
     Dosage: 2.5 MG OR 5 MG DAILY
     Route: 048
     Dates: start: 20100315, end: 20100512
  42. ATORVASTATIN [Suspect]
     Dosage: 2.5 MG OR 5 MG DAILY
     Route: 048
     Dates: start: 20100530
  43. ATORVASTATIN [Suspect]
     Dosage: 2.5 MG OR 5 MG DAILY
     Route: 048
     Dates: start: 20100901, end: 20100905
  44. HYDROCHLOROTHIAZIDE [Concomitant]

REACTIONS (4)
  - PANCREATIC MASS [None]
  - GASTRITIS EROSIVE [None]
  - JAUNDICE CHOLESTATIC [None]
  - HEPATIC ENZYME INCREASED [None]
